FAERS Safety Report 6827272-8 (Version None)
Quarter: 2010Q3

REPORT INFORMATION
  Report Type: 
  Country: None (occurrence: None)
  Receive Date: 20100709
  Receipt Date: 20100707
  Transmission Date: 20110219
  Serious: Yes (Death)
  Sender: FDA-Public Use
  Company Number: MX-B.I. PHARMACEUTICALS,INC./RIDGEFIELD-2010-MX-00072MX

PATIENT
  Age: 28 Year
  Sex: Female

DRUGS (3)
  1. APTIVUS [Suspect]
     Indication: ACQUIRED IMMUNODEFICIENCY SYNDROME
     Dosage: 2 CAPSULES DAILY
     Route: 048
     Dates: start: 20080728
  2. RITONAVIR [Concomitant]
     Indication: ACQUIRED IMMUNODEFICIENCY SYNDROME
     Dosage: 2 CAPSULES DAILY
     Route: 048
     Dates: start: 20080728
  3. KIVEXA [Concomitant]
     Indication: ACQUIRED IMMUNODEFICIENCY SYNDROME
     Dosage: 1 TABLET DAILY
     Route: 048
     Dates: start: 20080728

REACTIONS (1)
  - CACHEXIA [None]
